FAERS Safety Report 4543279-8 (Version None)
Quarter: 2004Q4

REPORT INFORMATION
  Report Type: 
  Country: None (occurrence: None)
  Receive Date: 20041229
  Receipt Date: 20041126
  Transmission Date: 20050328
  Serious: Yes (Hospitalization)
  Sender: FDA-Public Use
  Company Number: 8008362

PATIENT
  Age: 69 Year
  Sex: Female

DRUGS (5)
  1. KEPPRA [Suspect]
     Indication: COMPLEX PARTIAL SEIZURES
     Dosage: 1000 MG/D PO
     Route: 048
     Dates: start: 20031117
  2. LAMOTRIGINE [Concomitant]
  3. ATORVASTATIN [Concomitant]
  4. L-THYROXINE [Concomitant]
  5. CANDESARTAN [Concomitant]

REACTIONS (3)
  - COMPLEX PARTIAL SEIZURES [None]
  - CONDITION AGGRAVATED [None]
  - DRUG INEFFECTIVE [None]
